FAERS Safety Report 21007723 (Version 7)
Quarter: 2022Q4

REPORT INFORMATION
  Report Type: Spontaneous
  Country: JP (occurrence: JP)
  Receive Date: 20220627
  Receipt Date: 20221209
  Transmission Date: 20230113
  Serious: Yes (Other)
  Sender: FDA-Public Use
  Company Number: JP-NBI-J202209270BIPI

PATIENT
  Age: 79 Year
  Sex: Female

DRUGS (1)
  1. OFEV [Suspect]
     Active Substance: NINTEDANIB
     Indication: Idiopathic pulmonary fibrosis
     Route: 048
     Dates: start: 20220404

REACTIONS (29)
  - Abscess jaw [Recovered/Resolved]
  - Faeces soft [Recovered/Resolved]
  - Decreased appetite [Not Recovered/Not Resolved]
  - Dyspnoea exertional [Not Recovered/Not Resolved]
  - Cough [Recovered/Resolved]
  - Jaw disorder [Recovered/Resolved]
  - Insomnia [Not Recovered/Not Resolved]
  - Abdominal pain [Recovered/Resolved]
  - Constipation [Recovered/Resolved]
  - Flatulence [Not Recovered/Not Resolved]
  - Muscular weakness [Not Recovered/Not Resolved]
  - Night sweats [Not Recovered/Not Resolved]
  - Renal function test abnormal [Not Recovered/Not Resolved]
  - Jaw disorder [Recovered/Resolved]
  - Decreased appetite [Not Recovered/Not Resolved]
  - Toothache [Not Recovered/Not Resolved]
  - Gingival swelling [Not Recovered/Not Resolved]
  - Diarrhoea [Not Recovered/Not Resolved]
  - Cough [Recovered/Resolved]
  - Dyschezia [Recovered/Resolved]
  - Productive cough [Not Recovered/Not Resolved]
  - Dizziness [Not Recovered/Not Resolved]
  - Weight decreased [Not Recovered/Not Resolved]
  - Oxygen saturation decreased [Not Recovered/Not Resolved]
  - Back pain [Not Recovered/Not Resolved]
  - Dizziness [Unknown]
  - Listless [Unknown]
  - Cough [Not Recovered/Not Resolved]
  - Pulmonary function test increased [Not Recovered/Not Resolved]

NARRATIVE: CASE EVENT DATE: 20220404
